FAERS Safety Report 7580798-4 (Version None)
Quarter: 2011Q2

REPORT INFORMATION
  Report Type: 
  Country: None (occurrence: None)
  Receive Date: 20110622
  Receipt Date: 20110608
  Transmission Date: 20111010
  Serious: Yes (Death, Disabling)
  Sender: FDA-Public Use
  Company Number: 2011-1839

PATIENT
  Sex: Male

DRUGS (6)
  1. SYNTHRORID (LEVOTHYROXINE SODIUM) [Concomitant]
  2. CORTISONE (CORTISONE) [Concomitant]
  3. PAIN MEDICATION (MENTHOL W/METHYL SALICYLATE) [Concomitant]
  4. BLOOD PRESSURE MEDICATION (ALL OTHER THERAPEUTIC PRODUCTS) [Concomitant]
  5. SOMATULINE AUTOGEL (LANREOTIDE AUTOGEL) (LANREOTIDE) (LANREOTIDE ACETA [Suspect]
     Indication: ACROMEGALY
     Dosage: 120 MG (120 MG, 1 IN 28 D), SUBCUTANEOUS
     Route: 058
     Dates: start: 20100801, end: 20110506
  6. DEXAMETHASONE [Concomitant]

REACTIONS (2)
  - PITUITARY CANCER METASTATIC [None]
  - BLINDNESS [None]
